FAERS Safety Report 8889216 (Version 1)
Quarter: 2012Q4

REPORT INFORMATION
  Report Type: 
  Country: ES (occurrence: ES)
  Receive Date: 20121106
  Receipt Date: 20121106
  Transmission Date: 20130627
  Serious: Yes (Hospitalization)
  Sender: FDA-Public Use
  Company Number: ES-NAPPMUNDI-GBR-2012-0012022

PATIENT
  Age: 62 Year
  Sex: Female

DRUGS (1)
  1. MST CONTINUS [Suspect]
     Indication: PRODUCT USED FOR UNKNOWN INDICATION
     Route: 048

REACTIONS (8)
  - Overdose [Recovering/Resolving]
  - Apnoeic attack [Recovering/Resolving]
  - Delirium [Recovering/Resolving]
  - Aphagia [Recovering/Resolving]
  - Incorrect dose administered [Recovering/Resolving]
  - Somnolence [Recovering/Resolving]
  - Restlessness [Recovering/Resolving]
  - Drug dispensing error [Recovering/Resolving]
